FAERS Safety Report 24196253 (Version 1)
Quarter: 2024Q3

REPORT INFORMATION
  Report Type: Report from Study
  Country: CA (occurrence: CA)
  Receive Date: 20240809
  Receipt Date: 20240809
  Transmission Date: 20241017
  Serious: Yes (Hospitalization)
  Sender: SAMSUNG BIOEPIS
  Company Number: CA-SAMSUNG BIOEPIS-SB-2024-23493

PATIENT
  Age: 15 Year
  Sex: Male
  Weight: 49.7 kg

DRUGS (2)
  1. RENFLEXIS [Suspect]
     Active Substance: INFLIXIMAB-ABDA
     Indication: Colitis ulcerative
     Dosage: INDUCTION WEEK 0, 1, 4;
     Route: 042
     Dates: start: 20240724
  2. Pentassa enema [Concomitant]
     Indication: Product used for unknown indication
     Route: 048

REACTIONS (3)
  - Malaise [Unknown]
  - Off label use [Unknown]
  - Prescribed overdose [Unknown]
